FAERS Safety Report 12205233 (Version 1)
Quarter: 2016Q1

REPORT INFORMATION
  Report Type: Spontaneous
  Country: US (occurrence: US)
  Receive Date: 20160323
  Receipt Date: 20160323
  Transmission Date: 20160526
  Serious: No
  Sender: FDA-Public Use
  Company Number: US-TEVA-644696USA

PATIENT

DRUGS (1)
  1. QVAR [Suspect]
     Active Substance: BECLOMETHASONE DIPROPIONATE
     Route: 055

REACTIONS (4)
  - Rash [Unknown]
  - Headache [Unknown]
  - Drug ineffective [Unknown]
  - Wheezing [Unknown]

NARRATIVE: CASE EVENT DATE: 20160229
